FAERS Safety Report 19467259 (Version 2)
Quarter: 2021Q3

REPORT INFORMATION
  Report Type: Spontaneous
  Country: RU (occurrence: RU)
  Receive Date: 20210628
  Receipt Date: 20210716
  Transmission Date: 20211014
  Serious: Yes (Death, Other)
  Sender: FDA-Public Use
  Company Number: RU-ROCHE-2853414

PATIENT
  Age: 70 Year
  Sex: Male

DRUGS (1)
  1. ATEZOLIZUMAB. [Suspect]
     Active Substance: ATEZOLIZUMAB
     Indication: ADENOCARCINOMA
     Dosage: DATE OF LAST DOSE : 16/APR/2021
     Route: 041
     Dates: start: 202103

REACTIONS (4)
  - Death [Fatal]
  - Ejection fraction decreased [Unknown]
  - Thyroid disorder [Unknown]
  - Tachycardia [Unknown]

NARRATIVE: CASE EVENT DATE: 202106
